FAERS Safety Report 5083904-9 (Version None)
Quarter: 2006Q3

REPORT INFORMATION
  Report Type: 
  Country: None (occurrence: None)
  Receive Date: 20060727
  Receipt Date: 20060412
  Transmission Date: 20061208
  Serious: Yes (Other)
  Sender: FDA-Public Use
  Company Number: 2006051178

PATIENT
  Age: 63 Year
  Sex: Male
  Weight: 92.9874 kg

DRUGS (9)
  1. LYRICA [Suspect]
     Indication: DIABETIC NEUROPATHY
     Dosage: 150 MG (50 MG, 3 IN 1 D)
     Dates: start: 20060215
  2. NIFEDIPINE [Concomitant]
  3. WELCHOL [Concomitant]
  4. AVAPRO [Concomitant]
  5. HYDROCHLOROTHIAZIDE [Concomitant]
  6. PLAVIX [Concomitant]
  7. PREVACID [Concomitant]
  8. ZETIA [Concomitant]
  9. NOVORAPID (INSULIN ASPART) [Concomitant]

REACTIONS (3)
  - BLOOD GLUCOSE INCREASED [None]
  - DRY MOUTH [None]
  - PAIN IN EXTREMITY [None]
